FAERS Safety Report 21268420 (Version 1)
Quarter: 2022Q3

REPORT INFORMATION
  Report Type: Spontaneous
  Country: CN (occurrence: None)
  Receive Date: 20220830
  Receipt Date: 20220830
  Transmission Date: 20221027
  Serious: Yes (Other)
  Sender: FDA-Public Use
  Company Number: CN-ROCHE-3167830

PATIENT
  Age: 81 Year

DRUGS (21)
  1. RITUXIMAB [Suspect]
     Active Substance: RITUXIMAB
     Indication: Product used for unknown indication
     Dosage: R-CHOP
     Route: 065
     Dates: start: 20160531
  2. VINCRISTINE [Concomitant]
     Active Substance: VINCRISTINE
     Indication: Mantle cell lymphoma
     Dosage: R-CHOP
     Dates: start: 20160531
  3. CYCLOPHOSPHAMIDE [Concomitant]
     Active Substance: CYCLOPHOSPHAMIDE
     Indication: Mantle cell lymphoma
     Dosage: R-CHOP
     Dates: start: 20160531
  4. DOXORUBICIN [Concomitant]
     Active Substance: DOXORUBICIN
     Indication: Mantle cell lymphoma
     Dosage: R-CHOP
     Dates: start: 20160531
  5. RITUXIMAB [Concomitant]
     Active Substance: RITUXIMAB
     Dosage: RITUXIMAB (NO ROCHE PRODUCT) + IBRUTINIB
     Dates: start: 20190131
  6. RITUXIMAB [Concomitant]
     Active Substance: RITUXIMAB
     Dosage: RITUXIMAB (NO ROCHE PRODUCT) + ORELABRUTINIB
     Dates: start: 202110
  7. RITUXIMAB [Concomitant]
     Active Substance: RITUXIMAB
     Dosage: RITUXIMAB (NO ROCHE PRODUCT) + ORELABRUTINIB + LENALIDOMIDE
     Dates: start: 202204
  8. RITUXIMAB [Concomitant]
     Active Substance: RITUXIMAB
     Dosage: RITUXIMAB (NO ROCHE PRODUCT) + BORTEZOMIB + BENDAMUSTINE
     Dates: start: 20220411
  9. RITUXIMAB [Concomitant]
     Active Substance: RITUXIMAB
     Dosage: AZACITIDINE+ RITUXIMAB (NO ROCHE PRODUCT)  + BORTEZOMIB + BENDAMUSTINE
     Dates: start: 20220515
  10. IBRUTINIB [Concomitant]
     Active Substance: IBRUTINIB
     Indication: Mantle cell lymphoma
     Dosage: RITUXIMAB (NO ROCHE PRODUCT) + IBRUTINIB
     Dates: start: 20190131
  11. IBRUTINIB [Concomitant]
     Active Substance: IBRUTINIB
     Dosage: IBRUTINIB
     Route: 048
     Dates: end: 201912
  12. PREDNISOLONE [Concomitant]
     Active Substance: PREDNISOLONE
     Indication: Mantle cell lymphoma
     Dosage: R-CHOP
     Dates: start: 20160531
  13. ORELABRUTINIB [Concomitant]
     Active Substance: ORELABRUTINIB
     Indication: Mantle cell lymphoma
     Dosage: RITUXIMAB (NO ROCHE PRODUCT) + ORELABRUTINIB
     Dates: start: 202110
  14. ORELABRUTINIB [Concomitant]
     Active Substance: ORELABRUTINIB
     Dosage: RITUXIMAB (NO ROCHE PRODUCT) + ORELABRUTINIB + LENALIDOMIDE
     Dates: start: 202204
  15. BORTEZOMIB [Concomitant]
     Active Substance: BORTEZOMIB
     Indication: Mantle cell lymphoma
     Dosage: RITUXIMAB (NO ROCHE PRODUCT) + BORTEZOMIB + BENDAMUSTINE
     Dates: start: 20220411
  16. BORTEZOMIB [Concomitant]
     Active Substance: BORTEZOMIB
     Dosage: AZACITIDINE+ RITUXIMAB (NO ROCHE PRODUCT)  + BORTEZOMIB + BENDAMUSTINE
     Dates: start: 20220515
  17. LENALIDOMIDE [Concomitant]
     Active Substance: LENALIDOMIDE
     Indication: Mantle cell lymphoma
     Dosage: RITUXIMAB (NO ROCHE PRODUCT) + ORELABRUTINIB + LENALIDOMIDE
     Dates: start: 202204
  18. LENALIDOMIDE [Concomitant]
     Active Substance: LENALIDOMIDE
     Dosage: LENALIDOMIDE
     Route: 048
  19. BENDAMUSTINE [Concomitant]
     Active Substance: BENDAMUSTINE
     Indication: Mantle cell lymphoma
     Dosage: RITUXIMAB (NO ROCHE PRODUCT) + BORTEZOMIB + BENDAMUSTINE
     Dates: start: 20220411
  20. BENDAMUSTINE [Concomitant]
     Active Substance: BENDAMUSTINE
     Dosage: AZACITIDINE+ RITUXIMAB (NO ROCHE PRODUCT)  + BORTEZOMIB + BENDAMUSTINE
     Dates: start: 20220515
  21. AZACITIDINE [Concomitant]
     Active Substance: AZACITIDINE
     Indication: Mantle cell lymphoma
     Dosage: AZACITIDINE+ RITUXIMAB (NO ROCHE PRODUCT)  + BORTEZOMIB + BENDAMUSTINE
     Dates: start: 20220515

REACTIONS (8)
  - Platelet count decreased [Unknown]
  - Pyrexia [Unknown]
  - Dyspnoea [Unknown]
  - Effusion [Unknown]
  - Blood bilirubin increased [Unknown]
  - Hiccups [Unknown]
  - Diarrhoea [Unknown]
  - Intentional product use issue [Unknown]
